FAERS Safety Report 12726322 (Version 6)
Quarter: 2017Q1

REPORT INFORMATION
  Report Type: Report from Study
  Country: FR (occurrence: FR)
  Receive Date: 20160908
  Receipt Date: 20170112
  Transmission Date: 20170428
  Serious: Yes (Hospitalization)
  Sender: FDA-Public Use
  Company Number: FR-VERTEX PHARMACEUTICALS-2016-005119

PATIENT
  Age: 32 Year
  Sex: Male
  Weight: 60 kg

DRUGS (16)
  1. VX-661/VX-770 [Suspect]
     Active Substance: INVESTIGATIONAL PRODUCT
     Indication: CYSTIC FIBROSIS
     Dosage: 100 MG, QD
     Route: 048
     Dates: start: 20160212
  2. PULMOZYME [Concomitant]
     Active Substance: DORNASE ALFA
     Indication: CYSTIC FIBROSIS LUNG
     Dosage: 1 AMP/DAY
     Route: 055
  3. MEROPENEM. [Suspect]
     Active Substance: MEROPENEM
     Indication: PRODUCT USED FOR UNKNOWN INDICATION
     Dosage: UNK
     Route: 042
     Dates: start: 20160715, end: 20160729
  4. UVEDOSE [Concomitant]
     Active Substance: CHOLECALCIFEROL
     Indication: PANCREATIC INSUFFICIENCY
     Dosage: 100000 IU 1/MONTH
     Route: 048
  5. COLOMYCIN [Concomitant]
     Active Substance: COLISTIN
     Indication: BACTERIAL DISEASE CARRIER
     Dosage: UNK, BID
     Route: 055
     Dates: start: 20000925
  6. INEXIUM [Concomitant]
     Active Substance: ESOMEPRAZOLE
     Indication: PANCREATIC INSUFFICIENCY
     Dosage: 40 MG, QD
     Route: 048
     Dates: start: 2013
  7. TOBRAMYCIN. [Suspect]
     Active Substance: TOBRAMYCIN
     Indication: PRODUCT USED FOR UNKNOWN INDICATION
     Dosage: UNK
     Route: 065
     Dates: start: 20160715, end: 20160729
  8. FORLAX [Concomitant]
     Active Substance: POLYETHYLENE GLYCOL 4000
     Indication: CONSTIPATION
     Dosage: 2/DAY
     Route: 048
     Dates: start: 2013
  9. VX-770/VX-661 [Suspect]
     Active Substance: INVESTIGATIONAL PRODUCT
     Indication: CYSTIC FIBROSIS
     Dosage: 150 MG, BID
     Route: 048
     Dates: start: 20160212
  10. CREON [Concomitant]
     Active Substance: PANCRELIPASE AMYLASE\PANCRELIPASE LIPASE\PANCRELIPASE PROTEASE
     Indication: PANCREATIC INSUFFICIENCY
     Dosage: UNK
     Route: 048
  11. VITAMIN A [Concomitant]
     Active Substance: VITAMIN A
     Indication: PANCREATIC INSUFFICIENCY
     Dosage: 1 TABLET/DAY
     Route: 048
  12. DELURSAN [Concomitant]
     Active Substance: URSODIOL
     Indication: HEPATIC ENZYME INCREASED
     Dosage: 500MG - 2.5/DAY
     Route: 048
     Dates: start: 2011
  13. VENTOLINE [Concomitant]
     Active Substance: ALBUTEROL
     Indication: RESPIRATORY FAILURE
     Dosage: 2/DAY
     Route: 055
     Dates: start: 2013
  14. TOCOPHEROL [Concomitant]
     Active Substance: TOCOPHEROL
     Indication: PANCREATIC INSUFFICIENCY
     Dosage: 500 MG, QD
     Route: 048
  15. ZITHROMAX [Concomitant]
     Active Substance: AZITHROMYCIN DIHYDRATE
     Indication: BACTERIAL DISEASE CARRIER
     Dosage: 250MG 3X WEEK
     Route: 048
     Dates: start: 2014
  16. FORTIMEL [Concomitant]
     Active Substance: DIETARY SUPPLEMENT
     Indication: CYSTIC FIBROSIS
     Dosage: UNK, BID
     Route: 048
     Dates: start: 2013

REACTIONS (1)
  - Rhabdomyolysis [Recovered/Resolved]

NARRATIVE: CASE EVENT DATE: 20160829
